FAERS Safety Report 20729279 (Version 1)
Quarter: 2022Q2

REPORT INFORMATION
  Report Type: Spontaneous
  Country: US (occurrence: None)
  Receive Date: 20220419
  Receipt Date: 20220419
  Transmission Date: 20220721
  Serious: Yes (Hospitalization)
  Sender: FDA-Public Use
  Company Number: None

PATIENT
  Age: 56 Year
  Sex: Male

DRUGS (1)
  1. AFINITOR [Suspect]
     Active Substance: EVEROLIMUS
     Dosage: FREQUENCY : DAILY;?
     Route: 048
     Dates: start: 202109

REACTIONS (6)
  - Therapy interrupted [None]
  - Stent placement [None]
  - Dizziness [None]
  - Dehydration [None]
  - Renal disorder [None]
  - Obstruction [None]

NARRATIVE: CASE EVENT DATE: 20220416
